FAERS Safety Report 18497987 (Version 1)
Quarter: 2020Q4

REPORT INFORMATION
  Report Type: Spontaneous
  Country: DE (occurrence: DE)
  Receive Date: 20201112
  Receipt Date: 20201112
  Transmission Date: 20210114
  Serious: Yes (Hospitalization, Other)
  Sender: FDA-Public Use
  Company Number: DE-MYLANLABS-2020M1093629

PATIENT
  Age: 24 Year
  Sex: Female

DRUGS (5)
  1. GEMTUZUMAB OZOGAMICIN [Suspect]
     Active Substance: GEMTUZUMAB OZOGAMICIN
     Indication: ACUTE MYELOID LEUKAEMIA
     Dosage: 3 MG/M2, CYCLIC (OVER 2 HOURS ON DAYS 1, 4, AND 7)
     Dates: start: 202006, end: 2020
  2. CYTARABINE. [Suspect]
     Active Substance: CYTARABINE
     Indication: ACUTE MYELOID LEUKAEMIA
     Dosage: 200 MG/M2, CYCLIC (OVER 24 HOURS ON DAYS 1 TO 7)
     Route: 042
     Dates: start: 202006, end: 2020
  3. MITOXANTRONE [Suspect]
     Active Substance: MITOXANTRONE HYDROCHLORIDE
     Indication: ACUTE MYELOID LEUKAEMIA
     Dosage: 10 MG/M2, CYCLIC (OVER 1 HOUR ON DAYS 3 TO 5)
     Route: 042
     Dates: start: 202007, end: 2020
  4. DAUNORUBICIN HCL [Suspect]
     Active Substance: DAUNORUBICIN HYDROCHLORIDE
     Indication: ACUTE MYELOID LEUKAEMIA
     Dosage: 60 MG/M2, CYCLIC (OVER 1 HOUR ON DAYS 1 TO 3)
     Route: 042
     Dates: start: 202006, end: 2020
  5. CYTARABINE. [Suspect]
     Active Substance: CYTARABINE
     Dosage: 1500 MG/M2, CYCLIC (OVER 3 HOURS ON DAYS 1 TO 3)
     Route: 042
     Dates: start: 202007, end: 2020

REACTIONS (8)
  - Bronchopulmonary aspergillosis [Unknown]
  - Vaginal haemorrhage [Unknown]
  - Streptococcal bacteraemia [Unknown]
  - Platelet count decreased [Unknown]
  - Subileus [Unknown]
  - Febrile neutropenia [Unknown]
  - Nausea [Unknown]
  - Neoplasm progression [Recovering/Resolving]

NARRATIVE: CASE EVENT DATE: 2020
